FAERS Safety Report 11241005 (Version 1)
Quarter: 2015Q3

REPORT INFORMATION
  Report Type: Spontaneous
  Country: US (occurrence: US)
  Receive Date: 20150706
  Receipt Date: 20150706
  Transmission Date: 20151125
  Serious: Yes (Hospitalization)
  Sender: FDA-Public Use
  Company Number: US-BANPHARM-20154023

PATIENT
  Age: 33 Year
  Sex: Male

DRUGS (5)
  1. IBUPROFEN UNKNOWN PRODUCT [Suspect]
     Active Substance: IBUPROFEN
     Indication: PYREXIA
     Dates: start: 201101, end: 201101
  2. PHENYTOIN. [Concomitant]
     Active Substance: PHENYTOIN
     Dosage: QD,
     Dates: start: 201101, end: 201212
  3. IBUPROFEN UNKNOWN PRODUCT [Suspect]
     Active Substance: IBUPROFEN
     Indication: PYREXIA
     Dates: start: 201212, end: 201212
  4. ACETAMINOPHEN. [Concomitant]
     Active Substance: ACETAMINOPHEN
     Indication: PYREXIA
  5. LEVETIRACETAM. [Concomitant]
     Active Substance: LEVETIRACETAM
     Dosage: 750 MG, BID,
     Dates: start: 201212, end: 201301

REACTIONS (2)
  - Encephalitis [Recovered/Resolved]
  - Encephalitis [Recovered/Resolved]

NARRATIVE: CASE EVENT DATE: 201101
